APPROVED DRUG PRODUCT: ERYTHROMYCIN
Active Ingredient: ERYTHROMYCIN
Strength: 250MG
Dosage Form/Route: TABLET;ORAL
Application: A216066 | Product #001 | TE Code: AB
Applicant: ALKEM LABORATORIES LTD
Approved: Jul 13, 2022 | RLD: No | RS: No | Type: RX